FAERS Safety Report 5778005-8 (Version None)
Quarter: 2008Q2

REPORT INFORMATION
  Report Type: 
  Country: None (occurrence: None)
  Receive Date: 20080617
  Receipt Date: 20080613
  Transmission Date: 20081010
  Serious: Yes (Other)
  Sender: FDA-Public Use
  Company Number: A0733109A

PATIENT
  Age: 40 Year
  Sex: Female

DRUGS (1)
  1. DIPHENHYDRAMINE HYDROCHLORIDE CAP [Suspect]
     Indication: DRUG USE FOR UNKNOWN INDICATION
     Dosage: ORAL
     Route: 048

REACTIONS (4)
  - ASTHMA [None]
  - DRY MOUTH [None]
  - INTENTIONAL DRUG MISUSE [None]
  - OESOPHAGEAL OEDEMA [None]
